FAERS Safety Report 11342699 (Version 1)
Quarter: 2015Q3

REPORT INFORMATION
  Report Type: Spontaneous
  Country: BR (occurrence: BR)
  Receive Date: 20150805
  Receipt Date: 20150805
  Transmission Date: 20151125
  Serious: Yes (Other)
  Sender: FDA-Public Use
  Company Number: BR-PFIZER INC-2015254668

PATIENT
  Sex: Male

DRUGS (1)
  1. FIBRASE [Suspect]
     Active Substance: CHLORAMPHENICOL

REACTIONS (3)
  - Cerebrovascular accident [Unknown]
  - Abasia [Unknown]
  - Aphasia [Unknown]
